FAERS Safety Report 9913119 (Version 1)
Quarter: 2014Q1

REPORT INFORMATION
  Report Type: Spontaneous
  Country: US (occurrence: None)
  Receive Date: 20140214
  Receipt Date: 20140214
  Transmission Date: 20141002
  Serious: Yes (Hospitalization, Other)
  Sender: FDA-Public Use
  Company Number: US-ZYDUS-002511

PATIENT
  Age: 65 Year
  Sex: Male

DRUGS (2)
  1. AMIODARONE [Suspect]
  2. DABIGATRAN ETEXILATE [Suspect]
     Dosage: 150.00-MG-2.00 TIMES PER-1.0DAYS

REACTIONS (9)
  - Gastric haemorrhage [None]
  - Drug interaction [None]
  - Melaena [None]
  - Cardiac failure [None]
  - Activated partial thromboplastin time prolonged [None]
  - Gastritis erosive [None]
  - Atrial thrombosis [None]
  - Prothrombin time prolonged [None]
  - Toxicity to various agents [None]
